FAERS Safety Report 7537872-8 (Version None)
Quarter: 2011Q2

REPORT INFORMATION
  Report Type: 
  Country: None (occurrence: None)
  Receive Date: 20110609
  Receipt Date: 20110608
  Transmission Date: 20111010
  Serious: Yes (Other)
  Sender: FDA-Public Use
  Company Number: DK-BAYER-2011-045936

PATIENT
  Age: 24 Year
  Sex: Male

DRUGS (2)
  1. ACETAMINOPHEN [Suspect]
     Indication: HEADACHE
     Dosage: 1 G X 2
  2. ACETYLSALICYLIC ACID + CAFFEINE [Suspect]
     Indication: HEADACHE
     Dosage: 500+50 MG

REACTIONS (1)
  - HEADACHE [None]
